FAERS Safety Report 13102776 (Version 1)
Quarter: 2017Q1

REPORT INFORMATION
  Report Type: Report from Study
  Country: US (occurrence: US)
  Receive Date: 20170110
  Receipt Date: 20170110
  Transmission Date: 20170428
  Serious: Yes (Life-Threatening, Hospitalization, Other)
  Sender: FDA-Public Use
  Company Number: US-TEVA-728322USA

PATIENT
  Age: 17 Year
  Sex: Female

DRUGS (3)
  1. AMETHYST [Suspect]
     Active Substance: ETHINYL ESTRADIOL\LEVONORGESTREL
     Indication: CHEMICAL CONTRACEPTION
     Dosage: 28X LNG 90MICROGRAMS/EE 20MICROGRAMS
     Route: 048
     Dates: start: 201301, end: 201304
  2. CYPROHEPTADINE. [Concomitant]
     Active Substance: CYPROHEPTADINE
     Indication: ASTHMA
  3. DULERA [Concomitant]
     Active Substance: FORMOTEROL FUMARATE DIHYDRATE\MOMETASONE FUROATE
     Indication: ASTHMA

REACTIONS (4)
  - Deep vein thrombosis [Unknown]
  - Peripheral swelling [Unknown]
  - Gait disturbance [Unknown]
  - Groin pain [Unknown]

NARRATIVE: CASE EVENT DATE: 201303
